FAERS Safety Report 4424149-2 (Version None)
Quarter: 2004Q3

REPORT INFORMATION
  Report Type: 
  Country: None (occurrence: None)
  Receive Date: 20040812
  Receipt Date: 20040809
  Transmission Date: 20050211
  Serious: Yes (Congenital Anomaly, Other)
  Sender: FDA-Public Use
  Company Number: PHNR2004AU01314

PATIENT
  Sex: Female
  Weight: 4 kg

DRUGS (4)
  1. CLOZARIL [Suspect]
     Indication: PSYCHOTIC DISORDER
     Route: 064
  2. VALPROIC ACID [Suspect]
     Route: 064
  3. ZYPREXA [Suspect]
     Route: 064
  4. ZUCLOPENTHIXOL DECANOATE [Concomitant]
     Route: 064

REACTIONS (12)
  - CEREBRAL HAEMORRHAGE NEONATAL [None]
  - CONGENITAL FOOT MALFORMATION [None]
  - CONVULSION [None]
  - DRUG EXPOSURE DURING PREGNANCY [None]
  - HEPATOSPLENOMEGALY NEONATAL [None]
  - HYPERAMMONAEMIA [None]
  - HYPERBILIRUBINAEMIA [None]
  - HYPOXIA [None]
  - LIVER DISORDER [None]
  - NEONATAL APNOEIC ATTACK [None]
  - VOMITING [None]
  - WEIGHT DECREASE NEONATAL [None]
